FAERS Safety Report 6328478-7 (Version None)
Quarter: 2009Q3

REPORT INFORMATION
  Report Type: 
  Country: None (occurrence: None)
  Receive Date: 20090826
  Receipt Date: 20080403
  Transmission Date: 20100115
  Serious: Yes (Hospitalization, Other)
  Sender: FDA-Public Use
  Company Number: US-ASTRAZENECA-2007UW24620

PATIENT
  Age: 15987 Day
  Sex: Male
  Weight: 93.9 kg

DRUGS (22)
  1. SEROQUEL [Suspect]
     Indication: BIPOLAR DISORDER
     Route: 048
     Dates: start: 19990701, end: 20070101
  2. SEROQUEL [Suspect]
     Indication: DEPRESSION
     Route: 048
     Dates: start: 19990701, end: 20070101
  3. SEROQUEL [Suspect]
     Indication: SLEEP DISORDER
     Route: 048
     Dates: start: 19990701, end: 20070101
  4. SEROQUEL [Suspect]
     Dosage: 100-600 MG
     Route: 048
     Dates: start: 20031002, end: 20070110
  5. SEROQUEL [Suspect]
     Dosage: 100-600 MG
     Route: 048
     Dates: start: 20031002, end: 20070110
  6. SEROQUEL [Suspect]
     Dosage: 100-600 MG
     Route: 048
     Dates: start: 20031002, end: 20070110
  7. DEPAKOTE [Suspect]
     Indication: BIPOLAR I DISORDER
     Dosage: 250-2000 MG
     Route: 048
     Dates: start: 20020404
  8. DEPAKOTE [Suspect]
     Indication: AGITATION
     Dosage: 250-2000 MG
     Route: 048
     Dates: start: 20020404
  9. DEPAKOTE [Suspect]
     Indication: MOOD SWINGS
     Dosage: 250-2000 MG
     Route: 048
     Dates: start: 20020404
  10. DEPAKOTE [Suspect]
     Indication: DEPRESSION
     Dosage: 250-2000 MG
     Route: 048
     Dates: start: 20020404
  11. TRAZODONE HCL [Suspect]
     Indication: DEPRESSION
     Dosage: 100-250 MG
     Dates: start: 20031203, end: 20071209
  12. TRAZODONE HCL [Suspect]
     Dosage: 300 MG
     Dates: start: 20071220
  13. KADIAN [Suspect]
     Dates: start: 20031203
  14. GEODON [Concomitant]
  15. LIPITOR [Concomitant]
     Indication: HYPERLIPIDAEMIA
     Dosage: 05-SEP-2006
  16. CLONOPIN [Concomitant]
  17. NEURONTIN [Concomitant]
     Indication: NEUROPATHY PERIPHERAL
     Dosage: 300-1600 MG
     Dates: start: 20020404
  18. ACTOS [Concomitant]
     Dosage: 30-45 MG
     Dates: start: 20040402
  19. LANTUS [Concomitant]
     Dosage: 20-80 UNITS
     Route: 058
     Dates: start: 20031203
  20. NOVOLIN R [Concomitant]
     Dosage: PER SLIDING SCALE
     Route: 058
     Dates: start: 20060905
  21. HUMALOG [Concomitant]
     Dosage: SLIDING SCALE
     Route: 058
     Dates: start: 20070129
  22. COZAAR [Concomitant]
     Dosage: 25-50 MG
     Dates: start: 20061101

REACTIONS (13)
  - DIABETES MELLITUS [None]
  - DIABETES MELLITUS INADEQUATE CONTROL [None]
  - DIABETIC EYE DISEASE [None]
  - DIABETIC NEPHROPATHY [None]
  - DIABETIC NEUROPATHY [None]
  - ERECTILE DYSFUNCTION [None]
  - HYPERGLYCAEMIC HYPEROSMOLAR NONKETOTIC SYNDROME [None]
  - HYPERPROLACTINAEMIA [None]
  - HYPOGLYCAEMIA [None]
  - INSULIN-REQUIRING TYPE 2 DIABETES MELLITUS [None]
  - NEUROPATHY PERIPHERAL [None]
  - TARDIVE DYSKINESIA [None]
  - TYPE 1 DIABETES MELLITUS [None]
